FAERS Safety Report 7483781-2 (Version None)
Quarter: 2011Q2

REPORT INFORMATION
  Report Type: 
  Country: None (occurrence: None)
  Receive Date: 20110517
  Receipt Date: 20110513
  Transmission Date: 20111010
  Serious: Yes (Death)
  Sender: FDA-Public Use
  Company Number: PHHY2011BR41159

PATIENT
  Sex: Female

DRUGS (6)
  1. LOSARTAN POTASSIUM [Concomitant]
     Indication: HYPERTENSION
     Dosage: 0.5 DF, BID
     Route: 048
  2. CARVEDILOL [Concomitant]
     Indication: CARDIAC DISORDER
     Dosage: 2 DF, DAILY
     Route: 048
  3. OMEPRAZOL [Concomitant]
     Dosage: 1 DF, DAILY
     Route: 048
  4. INSULIN [Concomitant]
     Indication: DIABETES MELLITUS
     Dosage: 10 IU/L, DAILY
     Route: 048
  5. PURAN T4 [Concomitant]
     Indication: HYPOTHYROIDISM
     Dosage: 0.5 DF, DAILY
     Route: 048
  6. EXELON [Suspect]
     Indication: DEMENTIA ALZHEIMER'S TYPE
     Dosage: 2 DF, DAILY
     Route: 048
     Dates: start: 20080101

REACTIONS (6)
  - RENAL FAILURE [None]
  - INCREASED UPPER AIRWAY SECRETION [None]
  - RESPIRATORY FAILURE [None]
  - FATIGUE [None]
  - CARDIAC FAILURE [None]
  - INFLUENZA [None]
